FAERS Safety Report 8881614 (Version 1)
Quarter: 2012Q4

REPORT INFORMATION
  Report Type: 
  Country: BR (occurrence: BR)
  Receive Date: 20121101
  Receipt Date: 20121101
  Transmission Date: 20130627
  Serious: Yes (Death)
  Sender: FDA-Public Use
  Company Number: BR-PFIZER INC-2012103394

PATIENT
  Age: 56 Year
  Sex: Male

DRUGS (4)
  1. SUTENT [Suspect]
     Indication: RENAL CELL CARCINOMA
     Dosage: 50 mg, once daily (cycle 4/2)
     Route: 048
     Dates: start: 20120321
  2. TRAMAL [Concomitant]
     Dosage: 50 mg, 4x/day (every 6 hours)
  3. LISADOR [Concomitant]
     Dosage: UNK, every 3 hours
  4. CALCIUM CARBONATE [Concomitant]
     Dosage: 200 mg, 1/day

REACTIONS (3)
  - Death [Fatal]
  - Pain in extremity [Not Recovered/Not Resolved]
  - Abdominal pain [Not Recovered/Not Resolved]
